FAERS Safety Report 5273142-9 (Version None)
Quarter: 2007Q1

REPORT INFORMATION
  Report Type: 
  Country: None (occurrence: None)
  Receive Date: 20070322
  Receipt Date: 20070312
  Transmission Date: 20070707
  Serious: Yes (Other)
  Sender: FDA-Public Use
  Company Number: US-SANOFI-SYNTHELABO-A03200702126

PATIENT
  Sex: Male

DRUGS (5)
  1. IBUPROFEN [Concomitant]
     Dosage: UNK
  2. INTERFERON [Concomitant]
     Dosage: UNK
     Route: 065
  3. AMBIEN [Suspect]
     Indication: INSOMNIA
     Dosage: 5 TO 10 MG UNK
     Route: 048
     Dates: start: 20050101
  4. WELLBUTRIN [Concomitant]
     Dosage: UNK
  5. RIBAVIRIN [Concomitant]
     Dosage: UNK

REACTIONS (4)
  - AMNESIA [None]
  - BALANCE DISORDER [None]
  - DIZZINESS [None]
  - IMPAIRED DRIVING ABILITY [None]
